FAERS Safety Report 4929972-3 (Version None)
Quarter: 2006Q1

REPORT INFORMATION
  Report Type: 
  Country: None (occurrence: None)
  Receive Date: 20060302
  Receipt Date: 20060220
  Transmission Date: 20060701
  Serious: Yes (Hospitalization)
  Sender: FDA-Public Use
  Company Number: ES-ABBOTT-06P-144-0325538-00

PATIENT
  Age: 55 Year
  Sex: Female

DRUGS (6)
  1. KLACID I.V. [Suspect]
     Indication: RESPIRATORY DISORDER
     Route: 042
     Dates: start: 20060114, end: 20060114
  2. PREDNISONE [Concomitant]
     Indication: DRUG USE FOR UNKNOWN INDICATION
     Route: 048
     Dates: start: 20060114
  3. OMEPRAZOLE [Concomitant]
     Indication: DRUG USE FOR UNKNOWN INDICATION
     Route: 048
  4. SERETIDE MITE [Concomitant]
     Indication: DRUG USE FOR UNKNOWN INDICATION
     Route: 055
  5. SMYBICORT TURBUHALER [Concomitant]
     Indication: DRUG USE FOR UNKNOWN INDICATION
     Route: 055
  6. SALBUTAMOL [Concomitant]
     Indication: DRUG USE FOR UNKNOWN INDICATION
     Route: 055

REACTIONS (7)
  - AGITATION [None]
  - ASTHENIA [None]
  - CONFUSIONAL STATE [None]
  - COORDINATION ABNORMAL [None]
  - HALLUCINATION [None]
  - MALAISE [None]
  - NYSTAGMUS [None]
